FAERS Safety Report 12192059 (Version 1)
Quarter: 2016Q1

REPORT INFORMATION
  Report Type: Report from Study
  Country: MX (occurrence: MX)
  Receive Date: 20160318
  Receipt Date: 20160318
  Transmission Date: 20160526
  Serious: Yes (Hospitalization)
  Sender: FDA-Public Use
  Company Number: PHHY2016MX036264

PATIENT
  Sex: Male

DRUGS (2)
  1. LIQUID [Concomitant]
     Active Substance: TROLAMINE SALICYLATE
     Indication: ARTHRITIS
     Route: 065
  2. DIOVAN [Suspect]
     Active Substance: VALSARTAN
     Indication: BLOOD PRESSURE ABNORMAL
     Dosage: 320/25 MG
     Route: 065

REACTIONS (3)
  - Malaise [Unknown]
  - Head injury [Unknown]
  - Syncope [Unknown]
